FAERS Safety Report 6055027-3 (Version None)
Quarter: 2009Q1

REPORT INFORMATION
  Report Type: 
  Country: None (occurrence: None)
  Receive Date: 20090122
  Receipt Date: 20090107
  Transmission Date: 20090719
  Serious: Yes (Death)
  Sender: FDA-Public Use
  Company Number: 2009000083

PATIENT
  Age: 68 Year
  Sex: Female

DRUGS (4)
  1. ERLOTINIB                      (ERLOTINIB) [Suspect]
     Indication: PANCREATIC CARCINOMA
     Dosage: ORAL
     Route: 048
     Dates: start: 20080930, end: 20081126
  2. GEMCITABINE [Suspect]
     Dosage: INTRAVENOUS
     Route: 042
     Dates: start: 20080930, end: 20081126
  3. ZOFRAN [Concomitant]
  4. METOCLOPRAMIDE [Concomitant]

REACTIONS (3)
  - CARDIAC DISORDER [None]
  - PULMONARY EMBOLISM [None]
  - SUDDEN DEATH [None]
